FAERS Safety Report 9259878 (Version 3)
Quarter: 2013Q3

REPORT INFORMATION
  Report Type: Spontaneous
  Country: US (occurrence: US)
  Receive Date: 20130429
  Receipt Date: 20130927
  Transmission Date: 20140515
  Serious: Yes (Hospitalization, Other)
  Sender: FDA-Public Use
  Company Number: US-ASTRAZENECA-2013SE27547

PATIENT
  Age: 81 Year
  Sex: Female

DRUGS (22)
  1. NEXIUM [Suspect]
     Indication: FLATULENCE
     Dosage: DAILY
     Route: 048
     Dates: start: 2002, end: 2010
  2. NEXIUM [Suspect]
     Indication: GASTROOESOPHAGEAL REFLUX DISEASE
     Dosage: DAILY
     Route: 048
     Dates: start: 2002, end: 2010
  3. NEXIUM [Suspect]
     Indication: HIATUS HERNIA
     Dosage: DAILY
     Route: 048
     Dates: start: 2002, end: 2010
  4. NEXIUM [Suspect]
     Indication: FLATULENCE
     Route: 048
     Dates: start: 2003, end: 2012
  5. NEXIUM [Suspect]
     Indication: GASTROOESOPHAGEAL REFLUX DISEASE
     Route: 048
     Dates: start: 2003, end: 2012
  6. NEXIUM [Suspect]
     Indication: HIATUS HERNIA
     Route: 048
     Dates: start: 2003, end: 2012
  7. NEXIUM [Suspect]
     Indication: FLATULENCE
     Route: 048
     Dates: start: 20030917
  8. NEXIUM [Suspect]
     Indication: GASTROOESOPHAGEAL REFLUX DISEASE
     Route: 048
     Dates: start: 20030917
  9. NEXIUM [Suspect]
     Indication: HIATUS HERNIA
     Route: 048
     Dates: start: 20030917
  10. PRILOSEC [Suspect]
     Indication: FLATULENCE
     Route: 048
  11. PRILOSEC [Suspect]
     Indication: GASTROOESOPHAGEAL REFLUX DISEASE
     Route: 048
  12. PRILOSEC [Suspect]
     Indication: FLATULENCE
     Dosage: DAILY
     Route: 048
     Dates: start: 2000, end: 2007
  13. PRILOSEC [Suspect]
     Indication: GASTROOESOPHAGEAL REFLUX DISEASE
     Dosage: DAILY
     Route: 048
     Dates: start: 2000, end: 2007
  14. TUMS [Concomitant]
  15. MILK OF MAGNESIA [Concomitant]
     Dosage: AS NEEDED
  16. MYLANTA [Concomitant]
  17. TENERETIC [Concomitant]
  18. SYNTHROID [Concomitant]
  19. NEUROTIN [Concomitant]
  20. MIRAPIX [Concomitant]
  21. K DUR [Concomitant]
  22. LORTAB [Concomitant]

REACTIONS (20)
  - Upper limb fracture [Unknown]
  - Lymphoma [Unknown]
  - Fall [Unknown]
  - Neoplasm malignant [Unknown]
  - Humerus fracture [Unknown]
  - Non-Hodgkin^s lymphoma [Unknown]
  - Renal failure chronic [Unknown]
  - Intestinal obstruction [Unknown]
  - Osteoporosis [Unknown]
  - Wrist fracture [Unknown]
  - Bone disorder [Unknown]
  - Multiple fractures [Unknown]
  - Poor quality sleep [Unknown]
  - Calcium deficiency [Unknown]
  - Cataract [Unknown]
  - Cardiovascular disorder [Unknown]
  - Arthritis [Unknown]
  - Vitamin D deficiency [Unknown]
  - Osteoarthritis [Unknown]
  - Depression [Unknown]
